FAERS Safety Report 4594744-9 (Version None)
Quarter: 2005Q1

REPORT INFORMATION
  Report Type: 
  Country: None (occurrence: None)
  Receive Date: 20050301
  Receipt Date: 20050221
  Transmission Date: 20050727
  Serious: Yes (Other)
  Sender: FDA-Public Use
  Company Number: PHEH2005US02367

PATIENT
  Age: 87 Year
  Sex: Female

DRUGS (1)
  1. ELIDEL [Suspect]
     Indication: VITILIGO
     Dosage: UNK, BID
     Route: 061
     Dates: start: 20040113, end: 20040212

REACTIONS (1)
  - SQUAMOUS CELL CARCINOMA OF SKIN [None]
